FAERS Safety Report 4935449-1 (Version None)
Quarter: 2006Q1

REPORT INFORMATION
  Report Type: 
  Country: None (occurrence: None)
  Receive Date: 20060307
  Receipt Date: 20060302
  Transmission Date: 20060701
  Serious: Yes (Death)
  Sender: FDA-Public Use
  Company Number: MA-GLAXOSMITHKLINE-B0414338A

PATIENT
  Age: 26 Year
  Sex: Female

DRUGS (1)
  1. DEROXAT [Suspect]
     Indication: DEPRESSION
     Dosage: 20MG PER DAY
     Route: 065
     Dates: start: 20060201, end: 20060201

REACTIONS (3)
  - COMA [None]
  - DEATH [None]
  - MYOCLONUS [None]
